FAERS Safety Report 24810725 (Version 1)
Quarter: 2025Q1

REPORT INFORMATION
  Report Type: Spontaneous
  Country: US (occurrence: US)
  Receive Date: 20250106
  Receipt Date: 20250106
  Transmission Date: 20250408
  Serious: Yes (Other)
  Sender: TEVA
  Company Number: US-TEVA-VS-3281105

PATIENT
  Age: 37 Year
  Sex: Female
  Weight: 43.09 kg

DRUGS (1)
  1. AUSTEDO [Suspect]
     Active Substance: DEUTETRABENAZINE
     Indication: Huntington^s disease
     Dosage: TWO AUSTEDO 12 MG TABLETS TWICE A DAY
     Route: 065

REACTIONS (7)
  - Huntington^s disease [Unknown]
  - Loss of personal independence in daily activities [Unknown]
  - Cachexia [Unknown]
  - Product use issue [Unknown]
  - Metabolic disorder [Unknown]
  - Fat tissue decreased [Unknown]
  - Gait inability [Unknown]
